FAERS Safety Report 25956930 (Version 1)
Quarter: 2025Q4

REPORT INFORMATION
  Report Type: Spontaneous
  Country: IR (occurrence: None)
  Receive Date: 20251023
  Receipt Date: 20251023
  Transmission Date: 20260118
  Serious: Yes (Life-Threatening, Hospitalization)
  Sender: FDA-CTU
  Company Number: None

PATIENT
  Age: 24 Year
  Sex: Female
  Weight: 55 kg

DRUGS (2)
  1. AMOXICILLIN [Suspect]
     Active Substance: AMOXICILLIN
     Dosage: OTHER QUANTITY : 30 TABLET(S)?FREQUENCY : EVERY 12 HOURS?
     Route: 048
  2. VONOPRAZAN [Concomitant]
     Active Substance: VONOPRAZAN

REACTIONS (5)
  - Pruritus [None]
  - Urticaria [None]
  - Swelling face [None]
  - Erythema [None]
  - Lip swelling [None]

NARRATIVE: CASE EVENT DATE: 20251023
